FAERS Safety Report 10008468 (Version 3)
Quarter: 2014Q2

REPORT INFORMATION
  Report Type: Spontaneous
  Country: IT (occurrence: IT)
  Receive Date: 20140313
  Receipt Date: 20140417
  Transmission Date: 20141212
  Serious: Yes (Hospitalization)
  Sender: FDA-Public Use
  Company Number: IT-009507513-1403ITA002027

PATIENT
  Age: 71 Year
  Sex: Male
  Weight: 78 kg

DRUGS (7)
  1. REBETOL [Suspect]
     Indication: HEPATITIS C
     Dosage: 400 MG, DAILY
     Route: 048
     Dates: start: 20131011, end: 20131229
  2. PEGINTRON [Suspect]
     Indication: HEPATITIS C
     Dosage: 120 MICROGRAM, QW
     Route: 058
     Dates: start: 20131011, end: 20131229
  3. VICTRELIS [Suspect]
     Indication: HEPATITIS C
     Dosage: 2400 MG DAILY
     Route: 048
     Dates: start: 20131114, end: 20131229
  4. EPREX [Suspect]
     Indication: ANAEMIA
     Dosage: 40000 IU, QW
     Route: 058
     Dates: start: 20131219, end: 20131229
  5. BLESSED THISTLE [Concomitant]
  6. CURCUMA PHAEOCAULIS [Concomitant]
  7. EUTIROX [Concomitant]
     Dosage: UNK
     Route: 048

REACTIONS (1)
  - Asthenia [Recovering/Resolving]
